FAERS Safety Report 15187167 (Version 1)
Quarter: 2018Q3

REPORT INFORMATION
  Report Type: Report from Study
  Country: US (occurrence: US)
  Receive Date: 20180723
  Receipt Date: 20180723
  Transmission Date: 20181010
  Serious: Yes (Death, Hospitalization, Other)
  Sender: FDA-Public Use
  Company Number: US-EXELIXIS-CABO-18012028

PATIENT
  Age: 57 Year
  Sex: Male
  Weight: 98.59 kg

DRUGS (41)
  1. MORPHINE [Concomitant]
     Active Substance: MORPHINE
  2. VITAMIN D3 [Concomitant]
     Active Substance: CHOLECALCIFEROL
  3. DEXAMETHASONE SODIUM PHOSPHATE. [Concomitant]
     Active Substance: DEXAMETHASONE SODIUM PHOSPHATE
  4. SYMBICORT [Concomitant]
     Active Substance: BUDESONIDE\FORMOTEROL FUMARATE DIHYDRATE
  5. AMLODIPINE BESYLATE. [Concomitant]
     Active Substance: AMLODIPINE BESYLATE
     Indication: HYPERTENSION
  6. FLUTICASONE PROPIONATE. [Concomitant]
     Active Substance: FLUTICASONE PROPIONATE
     Indication: ASTHMA
  7. ASPIRIN. [Concomitant]
     Active Substance: ASPIRIN
  8. ONDANSETRON [Concomitant]
     Active Substance: ONDANSETRON
     Indication: NAUSEA
  9. FLUDROCORTISONE ACETATE. [Concomitant]
     Active Substance: FLUDROCORTISONE ACETATE
  10. PREDNISONE. [Concomitant]
     Active Substance: PREDNISONE
  11. COQ10 [Concomitant]
     Active Substance: UBIDECARENONE
  12. PROAIR HFA [Concomitant]
     Active Substance: ALBUTEROL SULFATE
  13. FLAXSEED [Concomitant]
     Active Substance: FLAX SEED
  14. VITAMIN E [Concomitant]
     Active Substance: .ALPHA.-TOCOPHEROL
  15. CABOMETYX [Suspect]
     Active Substance: CABOZANTINIB S-MALATE
     Dosage: 40 MG, QD
     Route: 048
     Dates: start: 20170317
  16. CABOMETYX [Suspect]
     Active Substance: CABOZANTINIB S-MALATE
     Dosage: 20 MG, QD
     Route: 048
     Dates: start: 20170417, end: 20171224
  17. CHLORPROMAZINE. [Concomitant]
     Active Substance: CHLORPROMAZINE
  18. LORATADINE. [Concomitant]
     Active Substance: LORATADINE
     Indication: ASTHMA
  19. OMEPRAZOLE. [Concomitant]
     Active Substance: OMEPRAZOLE
  20. DOXAZOSIN [Concomitant]
     Active Substance: DOXAZOSIN\DOXAZOSIN MESYLATE
     Indication: HYPERTENSION
  21. DOXAZOSIN MESYLATE. [Concomitant]
     Active Substance: DOXAZOSIN MESYLATE
  22. ONDANSETRON [Concomitant]
     Active Substance: ONDANSETRON
     Indication: VOMITING
  23. LEVOFLOXACIN. [Concomitant]
     Active Substance: LEVOFLOXACIN
  24. AFINITOR [Concomitant]
     Active Substance: EVEROLIMUS
  25. MAGIC MOUTHWASH [Concomitant]
     Active Substance: DIPHENHYDRAMINE HYDROCHLORIDE\LIDOCAINE HYDROCHLORIDE\NYSTATIN
  26. B6 [Concomitant]
     Active Substance: PYRIDOXINE HYDROCHLORIDE
  27. MUPIROCIN. [Concomitant]
     Active Substance: MUPIROCIN
  28. CABOMETYX [Suspect]
     Active Substance: CABOZANTINIB S-MALATE
     Indication: RENAL CANCER
     Dosage: 60 MG, QD
     Route: 048
     Dates: start: 20161114
  29. XGEVA [Suspect]
     Active Substance: DENOSUMAB
     Indication: PRODUCT USED FOR UNKNOWN INDICATION
     Dosage: UNK
     Dates: end: 20170926
  30. SENNA [Concomitant]
     Active Substance: SENNA LEAF\SENNOSIDES\SENNOSIDES A AND B
  31. ZINC. [Concomitant]
     Active Substance: ZINC
  32. LENVIMA [Concomitant]
     Active Substance: LENVATINIB
  33. CLARITIN [Concomitant]
     Active Substance: LORATADINE
  34. NEOMYCIN AND POLYMYXIN B SULFATES AND BACITRA [Concomitant]
  35. HYDROCODONE/ACETAMINOPHEN [Concomitant]
     Active Substance: ACETAMINOPHEN\HYDROCODONE
  36. VITAMIN B6 [Concomitant]
     Active Substance: PYRIDOXINE HYDROCHLORIDE
  37. ALBUTEROL SULFATE. [Concomitant]
     Active Substance: ALBUTEROL SULFATE
     Indication: WHEEZING
  38. IPRATROPIUM [Concomitant]
     Active Substance: IPRATROPIUM
  39. PROCHLORPERAZINE MALEATE. [Concomitant]
     Active Substance: PROCHLORPERAZINE MALEATE
     Indication: NAUSEA
  40. LEUPROLIDE ACETATE. [Concomitant]
     Active Substance: LEUPROLIDE ACETATE
     Indication: PROSTATE CANCER
  41. FLONASE [Concomitant]
     Active Substance: FLUTICASONE PROPIONATE

REACTIONS (16)
  - Malignant neoplasm progression [Fatal]
  - Large intestine perforation [Fatal]
  - Syncope [Recovered/Resolved]
  - Constipation [Recovering/Resolving]
  - Generalised oedema [Unknown]
  - Pleural effusion [Unknown]
  - Dyspnoea [Recovered/Resolved]
  - Influenza [Unknown]
  - Alveolar osteitis [Unknown]
  - Acute kidney injury [Unknown]
  - Osteonecrosis of jaw [Unknown]
  - Tooth discolouration [Unknown]
  - Decreased appetite [Unknown]
  - Drug ineffective [Unknown]
  - Abdominal pain [Unknown]
  - Ascites [Unknown]

NARRATIVE: CASE EVENT DATE: 20170830
